FAERS Safety Report 11332518 (Version 1)
Quarter: 2015Q3

REPORT INFORMATION
  Report Type: Spontaneous
  Country: US (occurrence: US)
  Receive Date: 20150803
  Receipt Date: 20150803
  Transmission Date: 20151125
  Serious: No
  Sender: FDA-Public Use
  Company Number: US-ELI_LILLY_AND_COMPANY-US200810006053

PATIENT
  Sex: Female
  Weight: 54.42 kg

DRUGS (3)
  1. ZYPREXA [Suspect]
     Active Substance: OLANZAPINE
     Indication: BIPOLAR DISORDER
     Dosage: 40 MG, EACH EVENING
     Dates: start: 1988
  2. CYMBALTA [Concomitant]
     Active Substance: DULOXETINE HYDROCHLORIDE
  3. DEPAKOTE [Concomitant]
     Active Substance: DIVALPROEX SODIUM

REACTIONS (5)
  - Attention deficit/hyperactivity disorder [Unknown]
  - Prescribed overdose [Unknown]
  - Weight increased [Unknown]
  - Increased appetite [Unknown]
  - Binge eating [Unknown]

NARRATIVE: CASE EVENT DATE: 1988
